FAERS Safety Report 16981090 (Version 1)
Quarter: 2019Q4

REPORT INFORMATION
  Report Type: Spontaneous
  Country: HU (occurrence: HU)
  Receive Date: 20191031
  Receipt Date: 20191031
  Transmission Date: 20200122
  Serious: Yes (Other)
  Sender: FDA-Public Use
  Company Number: NVSC2019HU019800

PATIENT
  Sex: Female

DRUGS (4)
  1. CERITINIB [Suspect]
     Active Substance: CERITINIB
     Indication: PRODUCT USED FOR UNKNOWN INDICATION
     Dosage: UNK
     Route: 065
     Dates: start: 201305, end: 2019
  2. ALIMTA [Concomitant]
     Active Substance: PEMETREXED DISODIUM
     Indication: PRODUCT USED FOR UNKNOWN INDICATION
     Dosage: UNK
     Route: 065
     Dates: start: 2013
  3. LORLATINIB [Concomitant]
     Active Substance: LORLATINIB
     Indication: PRODUCT USED FOR UNKNOWN INDICATION
     Dosage: 100 MG
     Route: 065
  4. CISPLATIN. [Suspect]
     Active Substance: CISPLATIN
     Indication: PRODUCT USED FOR UNKNOWN INDICATION
     Dosage: UNK (4 CYCLES)
     Route: 065
     Dates: start: 2013

REACTIONS (8)
  - Metastases to the mediastinum [Unknown]
  - Pyrexia [Unknown]
  - Renal impairment [Unknown]
  - Metastases to lymph nodes [Unknown]
  - Oedema peripheral [Unknown]
  - Metastases to bone [Unknown]
  - Disease progression [Unknown]
  - Lung opacity [Unknown]
